FAERS Safety Report 5961982-X (Version None)
Quarter: 2008Q4

REPORT INFORMATION
  Report Type: 
  Country: None (occurrence: None)
  Receive Date: 20081121
  Receipt Date: 20081110
  Transmission Date: 20090506
  Serious: Yes (Other)
  Sender: FDA-Public Use
  Company Number: PHHY2008JP26634

PATIENT
  Age: 58 Year
  Sex: Male

DRUGS (1)
  1. ZOMETA [Suspect]
     Indication: BONE PAIN
     Route: 042

REACTIONS (4)
  - ENZYME ABNORMALITY [None]
  - PYREXIA [None]
  - RENAL IMPAIRMENT [None]
  - TUMOUR LYSIS SYNDROME [None]
